FAERS Safety Report 19283104 (Version 1)
Quarter: 2021Q2

REPORT INFORMATION
  Report Type: Spontaneous
  Country: US (occurrence: US)
  Receive Date: 20210520
  Receipt Date: 20210520
  Transmission Date: 20210717
  Serious: Yes (Disabling)
  Sender: FDA-Public Use
  Company Number: None

PATIENT
  Age: 42 Year
  Sex: Female
  Weight: 87.75 kg

DRUGS (31)
  1. LACTAID [Concomitant]
     Active Substance: LACTASE
  2. LANTUS [Concomitant]
     Active Substance: INSULIN GLARGINE
  3. NALTREXONE [Concomitant]
     Active Substance: NALTREXONE
  4. OZEMPIC [Concomitant]
     Active Substance: SEMAGLUTIDE
  5. ACTOS [Concomitant]
     Active Substance: PIOGLITAZONE HYDROCHLORIDE
  6. HYPOCHLOROUS ACID [Concomitant]
     Active Substance: HYPOCHLOROUS ACID
  7. MELOXICAM. [Concomitant]
     Active Substance: MELOXICAM
  8. MIRALAX [Concomitant]
     Active Substance: POLYETHYLENE GLYCOL 3350
  9. ARISTADA [Concomitant]
     Active Substance: ARIPIPRAZOLE LAUROXIL
  10. FLUOCINOLONE [Concomitant]
     Active Substance: FLUOCINOLONE
  11. NOVOLOG [Concomitant]
     Active Substance: INSULIN ASPART
  12. TOPAMAX [Concomitant]
     Active Substance: TOPIRAMATE
  13. ASCORBIC ACID. [Concomitant]
     Active Substance: ASCORBIC ACID
  14. PRILOSEC [Concomitant]
     Active Substance: OMEPRAZOLE MAGNESIUM
  15. SENNA PLUS [Concomitant]
     Active Substance: DOCUSATE SODIUM\SENNOSIDES\SENNOSIDES A AND B
  16. NEURONTIN [Concomitant]
     Active Substance: GABAPENTIN
  17. NYSTATIN?TRIAMCINOLONE OINTMENT [Concomitant]
     Active Substance: NYSTATIN\TRIAMCINOLONE
  18. SIMVASTATIN. [Concomitant]
     Active Substance: SIMVASTATIN
  19. CRANBERRY CAPSULE [Concomitant]
     Active Substance: DIETARY SUPPLEMENT
  20. JANUMET [Suspect]
     Active Substance: METFORMIN HYDROCHLORIDE\SITAGLIPTIN PHOSPHATE
     Indication: DIABETES MELLITUS
     Dosage: ?          QUANTITY:1 CAPSULE(S);?
     Route: 048
  21. FOLIC ACID. [Concomitant]
     Active Substance: FOLIC ACID
  22. MELATONIN [Concomitant]
     Active Substance: MELATONIN
  23. BACLOFEN. [Concomitant]
     Active Substance: BACLOFEN
  24. BUSPIRONE [Concomitant]
     Active Substance: BUSPIRONE HYDROCHLORIDE
  25. EFFEXOR XR [Concomitant]
     Active Substance: VENLAFAXINE HYDROCHLORIDE
  26. PRESERVISION AREDS [Concomitant]
     Active Substance: MINERALS\VITAMINS
  27. C?PAP MACHINE [Concomitant]
     Active Substance: DEVICE
  28. OLOPATADINE HCL [Concomitant]
     Active Substance: OLOPATADINE HYDROCHLORIDE
  29. SALINE NASAL SPRAY [Concomitant]
     Active Substance: SODIUM CHLORIDE
  30. VITAMIN B12 [Concomitant]
     Active Substance: CYANOCOBALAMIN
  31. KNEE SLEEVE [Concomitant]

REACTIONS (1)
  - Hepatic cirrhosis [None]

NARRATIVE: CASE EVENT DATE: 20170815
